FAERS Safety Report 8224358-0 (Version None)
Quarter: 2012Q1

REPORT INFORMATION
  Report Type: 
  Country: None (occurrence: None)
  Receive Date: 20120307
  Receipt Date: 20110624
  Transmission Date: 20120608
  Serious: No
  Sender: FDA-Public Use
  Company Number: PHHY2011US57012

PATIENT
  Age: 6 Year
  Sex: Female

DRUGS (4)
  1. KEPPRA [Concomitant]
  2. AFINITOR [Suspect]
     Indication: MIXED ASTROCYTOMA-EPENDYMOMA
     Dosage: 5 MG, QD, ORAL
     Route: 048
     Dates: start: 20110108
  3. AFINITOR [Suspect]
     Indication: TUBEROUS SCLEROSIS
     Dosage: 5 MG, QD, ORAL
     Route: 048
     Dates: start: 20110108
  4. DIASTAT ^ATHENA^ (DIAZEPAM) [Concomitant]

REACTIONS (3)
  - PRURITUS [None]
  - RASH [None]
  - FOLLICULITIS [None]
